FAERS Safety Report 15602904 (Version 1)
Quarter: 2018Q4

REPORT INFORMATION
  Report Type: Spontaneous
  Country: US (occurrence: US)
  Receive Date: 20181109
  Receipt Date: 20181109
  Transmission Date: 20190205
  Serious: Yes (Other)
  Sender: FDA-Public Use
  Company Number: US-AMGEN-USASP2013041907

PATIENT
  Age: 78 Year
  Sex: Male

DRUGS (1)
  1. XGEVA [Suspect]
     Active Substance: DENOSUMAB
     Indication: METASTASES TO SPINE
     Dosage: 120 MG, Q4WK
     Route: 058

REACTIONS (4)
  - Blood albumin decreased [Unknown]
  - Blood parathyroid hormone increased [Unknown]
  - Hypocalcaemia [Recovering/Resolving]
  - Asthenia [Recovering/Resolving]
